FAERS Safety Report 9865888 (Version 1)
Quarter: 2014Q1

REPORT INFORMATION
  Report Type: Spontaneous
  Country: US (occurrence: US)
  Receive Date: 20140203
  Receipt Date: 20140203
  Transmission Date: 20141002
  Serious: No
  Sender: FDA-Public Use
  Company Number: US-ALLERGAN-1312295US

PATIENT
  Sex: Female

DRUGS (6)
  1. RESTASIS [Suspect]
     Indication: EYE PRURITUS
     Dosage: 2 GTT, BID
     Route: 047
     Dates: end: 20130925
  2. RESTASIS [Suspect]
     Indication: EYE IRRITATION
  3. VETRED [Concomitant]
     Indication: EYE PRURITUS
     Dosage: 2 GTT, UNK
     Route: 047
  4. VETRED [Concomitant]
     Indication: EYE IRRITATION
  5. REFRESH TEARS [Concomitant]
     Indication: EYE PRURITUS
     Dosage: 2 GTT, UNK
     Route: 047
  6. REFRESH TEARS [Concomitant]
     Indication: EYE IRRITATION
     Dosage: 2 GTT, QD
     Route: 047

REACTIONS (8)
  - Asthenopia [Unknown]
  - Vision blurred [Unknown]
  - Eye pruritus [Unknown]
  - Off label use [Unknown]
  - Eye pruritus [Unknown]
  - Excessive eye blinking [Unknown]
  - Abnormal sensation in eye [Unknown]
  - Eye irritation [Unknown]
